FAERS Safety Report 20730537 (Version 2)
Quarter: 2022Q2

REPORT INFORMATION
  Report Type: Spontaneous
  Country: US (occurrence: None)
  Receive Date: 20220420
  Receipt Date: 20220622
  Transmission Date: 20220721
  Serious: No
  Sender: FDA-Public Use
  Company Number: 2022A147193

PATIENT
  Age: 17424 Day
  Sex: Female
  Weight: 99.8 kg

DRUGS (1)
  1. BYDUREON BCISE [Suspect]
     Active Substance: EXENATIDE
     Indication: Blood glucose fluctuation
     Route: 058
     Dates: start: 202110

REACTIONS (5)
  - Body height decreased [Unknown]
  - Injection site injury [Unknown]
  - Injury associated with device [Unknown]
  - Device malfunction [Unknown]
  - Device delivery system issue [Not Recovered/Not Resolved]

NARRATIVE: CASE EVENT DATE: 20220411
